FAERS Safety Report 6831753-0 (Version None)
Quarter: 2010Q3

REPORT INFORMATION
  Report Type: 
  Country: None (occurrence: None)
  Receive Date: 20100712
  Receipt Date: 20100629
  Transmission Date: 20110219
  Serious: Yes (Other)
  Sender: FDA-Public Use
  Company Number: CA-ELI_LILLY_AND_COMPANY-CA201005006719

PATIENT
  Age: 63 Year
  Sex: Female
  Weight: 54.422 kg

DRUGS (6)
  1. FORTEO [Suspect]
     Indication: OSTEOPOROSIS
     Dosage: 20 UG, AS NEEDED
     Route: 058
     Dates: start: 20091208
  2. LIPITOR [Concomitant]
  3. URSO 250 [Concomitant]
  4. VITAMIN D [Concomitant]
  5. METAMUCIL-2 [Concomitant]
  6. ATIVAN [Concomitant]

REACTIONS (3)
  - DIZZINESS [None]
  - HEPATIC ENZYME ABNORMAL [None]
  - WEIGHT DECREASED [None]
